FAERS Safety Report 9002320 (Version 1)
Quarter: 2013Q1

REPORT INFORMATION
  Report Type: Spontaneous
  Country: US (occurrence: US)
  Receive Date: 20130107
  Receipt Date: 20130107
  Transmission Date: 20140127
  Serious: Yes (Hospitalization, Congenital Anomaly, Other)
  Sender: FDA-Public Use
  Company Number: US-PFIZER INC-2013002362

PATIENT
  Sex: Female

DRUGS (4)
  1. SERTRALINE HCL [Suspect]
     Indication: DEPRESSION
     Dosage: 50 MG, UNK
     Route: 064
     Dates: start: 20080916
  2. SERTRALINE HCL [Suspect]
     Indication: ANXIETY
     Dosage: 100 MG, UNK
     Route: 064
     Dates: start: 20081020
  3. SERTRALINE [Concomitant]
     Dosage: UNK
     Route: 064
  4. AMBIEN [Concomitant]
     Dosage: UNK
     Route: 064

REACTIONS (5)
  - Maternal exposure timing unspecified [Unknown]
  - Persistent foetal circulation [Unknown]
  - Fallot^s tetralogy [Unknown]
  - Congenital pulmonary valve atresia [Unknown]
  - Dilatation ventricular [Unknown]
